FAERS Safety Report 5101837-6 (Version None)
Quarter: 2006Q3

REPORT INFORMATION
  Report Type: 
  Country: None (occurrence: None)
  Receive Date: 20060731
  Receipt Date: 20060620
  Transmission Date: 20061208
  Serious: No
  Sender: FDA-Public Use
  Company Number: 2006PV016046

PATIENT
  Age: 40 Year
  Sex: Female
  Weight: 136.0791 kg

DRUGS (3)
  1. BYETTA [Suspect]
     Indication: DIABETES MELLITUS NON-INSULIN-DEPENDENT
     Dosage: 5 MCG; BID; SC
     Route: 058
     Dates: start: 20060401, end: 20060501
  2. METFORMIN HCL [Concomitant]
  3. AVANDAMET [Concomitant]

REACTIONS (2)
  - INJECTION SITE DISCOLOURATION [None]
  - INJECTION SITE IRRITATION [None]
